FAERS Safety Report 4732505-8 (Version None)
Quarter: 2005Q3

REPORT INFORMATION
  Report Type: 
  Country: None (occurrence: None)
  Receive Date: 20050803
  Receipt Date: 20050728
  Transmission Date: 20060218
  Serious: Yes (Disabling)
  Sender: FDA-Public Use
  Company Number: BR-GLAXOSMITHKLINE-A0568312A

PATIENT
  Age: 21 Year
  Sex: Male
  Weight: 72 kg

DRUGS (1)
  1. ZOVIRAX [Suspect]
     Indication: HERPES OPHTHALMIC
     Dosage: 10MG TWICE PER DAY
     Route: 047
     Dates: start: 20050517, end: 20050524

REACTIONS (4)
  - DRUG ADMINISTRATION ERROR [None]
  - EYE PAIN [None]
  - LACRIMATION INCREASED [None]
  - PHOTOPHOBIA [None]
